FAERS Safety Report 13234801 (Version 2)
Quarter: 2018Q1

REPORT INFORMATION
  Report Type: Report from Study
  Country: None (occurrence: US)
  Receive Date: 20170215
  Receipt Date: 20180212
  Transmission Date: 20180508
  Serious: Yes (Hospitalization, Other)
  Sender: FDA-Public Use
  Company Number: US-AMAG PHARMACEUTICALS, INC.-AMAG201602790

PATIENT

DRUGS (8)
  1. DUONEB [Concomitant]
     Active Substance: ALBUTEROL SULFATE\IPRATROPIUM BROMIDE
  2. PROTONIX [Concomitant]
     Active Substance: PANTOPRAZOLE SODIUM
  3. MAKENA [Suspect]
     Active Substance: HYDROXYPROGESTERONE CAPROATE
     Indication: PREMATURE LABOUR
     Dosage: UNK
     Route: 065
     Dates: start: 20160726, end: 20161115
  4. INSULIN [Concomitant]
     Active Substance: INSULIN NOS
  5. PRENATAL VITAMINS [Concomitant]
     Active Substance: VITAMINS
  6. ALBUTEROL. [Concomitant]
     Active Substance: ALBUTEROL
  7. METFORMIN [Concomitant]
     Active Substance: METFORMIN HYDROCHLORIDE
  8. METHYLDOPA. [Concomitant]
     Active Substance: METHYLDOPA

REACTIONS (1)
  - Premature delivery [Recovered/Resolved]

NARRATIVE: CASE EVENT DATE: 20161118
